FAERS Safety Report 5680355-0 (Version None)
Quarter: 2008Q1

REPORT INFORMATION
  Report Type: 
  Country: None (occurrence: None)
  Receive Date: 20080326
  Receipt Date: 20080321
  Transmission Date: 20080703
  Serious: Yes (Death)
  Sender: FDA-Public Use
  Company Number: KR-JNJFOC-20080305442

PATIENT
  Age: 57 Year
  Sex: Male

DRUGS (3)
  1. ABCIXIMAB [Suspect]
     Indication: EMBOLISM
  2. HEPARIN [Concomitant]
     Dosage: 2500 TO 3000 UNITS/HOUR
     Route: 042
  3. HEPARIN [Concomitant]
     Route: 042

REACTIONS (3)
  - INTRAVENTRICULAR HAEMORRHAGE [None]
  - SUBARACHNOID HAEMORRHAGE [None]
  - THROMBOCYTOPENIA [None]
